FAERS Safety Report 20157748 (Version 1)
Quarter: 2021Q4

REPORT INFORMATION
  Report Type: Spontaneous
  Country: US (occurrence: US)
  Receive Date: 20211207
  Receipt Date: 20211207
  Transmission Date: 20220303
  Serious: Yes (Death, Hospitalization, Other)
  Sender: FDA-Public Use
  Company Number: US-SA-2021SA407893

PATIENT
  Age: 69 Year
  Sex: Male

DRUGS (2)
  1. ASPIRIN [Suspect]
     Active Substance: ASPIRIN
     Indication: Antiplatelet therapy
     Dosage: 81 MG, QD
  2. CLOPIDOGREL BISULFATE [Suspect]
     Active Substance: CLOPIDOGREL BISULFATE
     Indication: Antiplatelet therapy
     Dosage: 75 MG, QD

REACTIONS (11)
  - Hepatorenal syndrome [Fatal]
  - Oliguria [Fatal]
  - Hypotension [Fatal]
  - Asthenia [Fatal]
  - Acute kidney injury [Fatal]
  - Renal failure [Fatal]
  - Melaena [Fatal]
  - Blood loss anaemia [Fatal]
  - Gastric disorder [Fatal]
  - Arteriovenous malformation [Fatal]
  - Dehydration [Fatal]
